FAERS Safety Report 12631990 (Version 2)
Quarter: 2016Q3

REPORT INFORMATION
  Report Type: Spontaneous
  Country: US (occurrence: US)
  Receive Date: 20160808
  Receipt Date: 20160808
  Transmission Date: 20161109
  Serious: No
  Sender: FDA-Public Use
  Company Number: US-BEH-2016061605

PATIENT
  Sex: Female
  Weight: 58 kg

DRUGS (15)
  1. CALCIUM-VITAMIN D [Concomitant]
  2. COENZYME Q10 [Concomitant]
     Active Substance: UBIDECARENONE
  3. HIZENTRA [Suspect]
     Active Substance: HUMAN IMMUNOGLOBULIN G
     Route: 058
  4. DIPHENHYDRAMINE. [Concomitant]
     Active Substance: DIPHENHYDRAMINE
  5. EPIPEN [Concomitant]
     Active Substance: EPINEPHRINE
  6. THERAGAN-M ADVANCED [Concomitant]
  7. HIZENTRA [Suspect]
     Active Substance: HUMAN IMMUNOGLOBULIN G
     Indication: IMMUNODEFICIENCY COMMON VARIABLE
     Route: 058
  8. HIZENTRA [Suspect]
     Active Substance: HUMAN IMMUNOGLOBULIN G
     Route: 058
  9. TYLENOL EX-STR [Concomitant]
  10. LIDOCAINE/PRILOCAINE [Concomitant]
     Active Substance: LIDOCAINE\PRILOCAINE
  11. L-M-X [Concomitant]
  12. PREMARIN [Concomitant]
     Active Substance: ESTROGENS, CONJUGATED
  13. ACYCLOVIR. [Concomitant]
     Active Substance: ACYCLOVIR
  14. VITAMIN D3 [Concomitant]
     Active Substance: CHOLECALCIFEROL
  15. DIGESTIVE-PROBIOTIC [Concomitant]

REACTIONS (1)
  - Urinary tract infection [Unknown]
